FAERS Safety Report 9370252 (Version 1)
Quarter: 2013Q2

REPORT INFORMATION
  Report Type: Spontaneous
  Country: US (occurrence: None)
  Receive Date: 20130624
  Receipt Date: 20130624
  Transmission Date: 20140414
  Serious: Yes (Hospitalization)
  Sender: FDA-Public Use
  Company Number: ACO-36850_2013

PATIENT
  Age: 58 Year
  Sex: Female
  Weight: 70.3 kg

DRUGS (11)
  1. AMPYRA (DALFAMPRIDINE) TABLET, 10MG [Suspect]
     Route: 048
  2. EFFEXOR (VENLAFAXINE HYDROCHLORIDE) UNKNOWN [Concomitant]
  3. PREMARIN (ESTROGENS CONJUGATED) [Concomitant]
  4. DEPAKOTE ER (VALPROATE SEMISODIUM) [Concomitant]
  5. COPAXONE (GLATIRAMER ACETATE) [Concomitant]
  6. IBUPROFEN (IBUPROFEN) [Concomitant]
  7. BACLOFEN (BACLOFEN) [Concomitant]
  8. WELLBUTRIN (BUPROPION HYDROCHLORIDE) [Concomitant]
  9. LEVOTHYROXINE SODIUM (LEVOTHYROXINE SODIUM) [Concomitant]
  10. NITROFURANTOIN [Concomitant]
  11. SANCTURA (TROSPIUM CHLORIDE) [Concomitant]

REACTIONS (1)
  - Gallbladder operation [None]
